FAERS Safety Report 4304644-7 (Version None)
Quarter: 2004Q1

REPORT INFORMATION
  Report Type: 
  Country: None (occurrence: None)
  Receive Date: 20040226
  Receipt Date: 20031106
  Transmission Date: 20041129
  Serious: Yes (Other)
  Sender: FDA-Public Use
  Company Number: US-GLAXOSMITHKLINE-A0433339A

PATIENT
  Age: 25 Year
  Sex: Female

DRUGS (3)
  1. WELLBUTRIN [Suspect]
     Indication: DEPRESSION
     Dosage: 150MG THREE TIMES PER DAY
     Route: 048
     Dates: start: 20031010, end: 20031017
  2. SONATA [Concomitant]
  3. ORTHO CYCLEN-28 [Concomitant]

REACTIONS (2)
  - AMNESIA [None]
  - GRAND MAL CONVULSION [None]
